FAERS Safety Report 17114636 (Version 1)
Quarter: 2019Q4

REPORT INFORMATION
  Report Type: Spontaneous
  Country: US (occurrence: US)
  Receive Date: 20191205
  Receipt Date: 20191205
  Transmission Date: 20200122
  Serious: No
  Sender: FDA-Public Use
  Company Number: NVSC2019US058447

PATIENT
  Age: 58 Year
  Sex: Female

DRUGS (4)
  1. DAPTOMYCIN. [Suspect]
     Active Substance: DAPTOMYCIN
     Indication: ENDOCARDITIS
  2. VANCOMYCIN [Suspect]
     Active Substance: VANCOMYCIN
     Indication: VASCULAR DEVICE INFECTION
     Dosage: UNK
     Route: 065
  3. VANCOMYCIN [Suspect]
     Active Substance: VANCOMYCIN
     Indication: ENDOCARDITIS
  4. DAPTOMYCIN. [Suspect]
     Active Substance: DAPTOMYCIN
     Indication: VASCULAR DEVICE INFECTION
     Dosage: UNK
     Route: 065

REACTIONS (1)
  - Treatment failure [Unknown]
